FAERS Safety Report 16410554 (Version 1)
Quarter: 2019Q2

REPORT INFORMATION
  Report Type: Spontaneous
  Country: US (occurrence: US)
  Receive Date: 20190502
  Receipt Date: 20190502
  Transmission Date: 20190711
  Serious: Yes (Other)
  Sender: FDA-Public Use
  Company Number: None

PATIENT
  Age: 80 Year
  Sex: Male
  Weight: 108.86 kg

DRUGS (17)
  1. LEVOFLOXACIN TAB 500MG ^AMEL^ [Suspect]
     Active Substance: LEVOFLOXACIN
     Indication: OROPHARYNGEAL PAIN
     Dosage: ?          QUANTITY:1 DF DOSAGE FORM;?
     Route: 048
     Dates: start: 20181212, end: 20181220
  2. POT CHLORIDE [Concomitant]
     Active Substance: POTASSIUM CHLORIDE
  3. ASPIRIN. [Concomitant]
     Active Substance: ASPIRIN
  4. NITROGLYCERIN. [Concomitant]
     Active Substance: NITROGLYCERIN
  5. LEVOFLOXACIN TAB 500MG ^AMEL^ [Suspect]
     Active Substance: LEVOFLOXACIN
     Indication: SINUS CONGESTION
     Dosage: ?          QUANTITY:1 DF DOSAGE FORM;?
     Route: 048
     Dates: start: 20181212, end: 20181220
  6. CITALOPRAM [Concomitant]
     Active Substance: CITALOPRAM HYDROBROMIDE
  7. INSULIN GLARGINE [Concomitant]
     Active Substance: INSULIN GLARGINE
  8. OMEPRAZOLE. [Concomitant]
     Active Substance: OMEPRAZOLE
  9. AMLODIPINE [Concomitant]
     Active Substance: AMLODIPINE BESYLATE
  10. FENOFIBRATE. [Concomitant]
     Active Substance: FENOFIBRATE
  11. FUROSEMIDE. [Concomitant]
     Active Substance: FUROSEMIDE
  12. LOSARTAN. [Concomitant]
     Active Substance: LOSARTAN
  13. JANUVIA [Concomitant]
     Active Substance: SITAGLIPTIN PHOSPHATE
  14. TRAMADOL. [Concomitant]
     Active Substance: TRAMADOL
  15. CLONIDINE. [Concomitant]
     Active Substance: CLONIDINE
  16. GLIPIZIDE. [Concomitant]
     Active Substance: GLIPIZIDE
  17. METOPROLOL. [Concomitant]
     Active Substance: METOPROLOL

REACTIONS (12)
  - Tremor [None]
  - Visual impairment [None]
  - Arthralgia [None]
  - Headache [None]
  - Hallucination, visual [None]
  - Gait disturbance [None]
  - Asthenia [None]
  - Swelling face [None]
  - Palpitations [None]
  - Tinnitus [None]
  - Confusional state [None]
  - Constipation [None]

NARRATIVE: CASE EVENT DATE: 20181212
